FAERS Safety Report 18888893 (Version 1)
Quarter: 2021Q1

REPORT INFORMATION
  Report Type: Not Available
  Country: US (occurrence: US)
  Receive Date: 20210212
  Receipt Date: 20210212
  Transmission Date: 20210420
  Serious: No
  Sender: FDA-Public Use
  Company Number: US-NEUROCRINE BIOSCIENCES INC.-2021NBI00528

PATIENT
  Age: 67 Year
  Sex: Male

DRUGS (13)
  1. RASAGILINE. [Concomitant]
     Active Substance: RASAGILINE
  2. ROPINIROLE. [Concomitant]
     Active Substance: ROPINIROLE
  3. ONGENTYS [Suspect]
     Active Substance: OPICAPONE
     Indication: PARKINSON^S DISEASE
     Route: 048
  4. AMLODIPINE [Concomitant]
     Active Substance: AMLODIPINE BESYLATE
  5. GOCOVRI [Concomitant]
     Active Substance: AMANTADINE
  6. GABAPENTIN. [Suspect]
     Active Substance: GABAPENTIN
     Indication: PRODUCT USED FOR UNKNOWN INDICATION
  7. OMEPRAZOLE. [Concomitant]
     Active Substance: OMEPRAZOLE
  8. ATORVASTATIN [Concomitant]
     Active Substance: ATORVASTATIN
  9. INBRIJA [Concomitant]
     Active Substance: LEVODOPA
  10. NUPLAZID [Concomitant]
     Active Substance: PIMAVANSERIN TARTRATE
  11. ALENDRONATE [Concomitant]
     Active Substance: ALENDRONATE SODIUM
  12. CARBIDOPA. [Concomitant]
     Active Substance: CARBIDOPA
  13. DULOXETINE. [Concomitant]
     Active Substance: DULOXETINE

REACTIONS (4)
  - Dizziness [Unknown]
  - Initial insomnia [Unknown]
  - Somnolence [Unknown]
  - Middle insomnia [Unknown]
